FAERS Safety Report 22649932 (Version 1)
Quarter: 2023Q2

REPORT INFORMATION
  Report Type: Spontaneous
  Country: US (occurrence: None)
  Receive Date: 20230627
  Receipt Date: 20230627
  Transmission Date: 20230722
  Serious: Yes (Disabling, Other)
  Sender: FDA-Public Use
  Company Number: None

PATIENT
  Age: 64 Year
  Sex: Male
  Weight: 90.26 kg

DRUGS (15)
  1. TRESIBA [Suspect]
     Active Substance: INSULIN DEGLUDEC
     Indication: Blood glucose increased
     Dosage: ONCE INJECTION
  2. HALDOL [Concomitant]
     Active Substance: HALOPERIDOL
  3. AMLODIPINE [Concomitant]
     Active Substance: AMLODIPINE BESYLATE
  4. GLIPIZIDE [Concomitant]
     Active Substance: GLIPIZIDE
  5. VITAMIN E [Concomitant]
     Active Substance: .ALPHA.-TOCOPHEROL
  6. VITAMIN D [Concomitant]
     Active Substance: VITAMIN D NOS
  7. B COMPLET [Concomitant]
  8. FLAXSEED [Concomitant]
     Active Substance: FLAX SEED
  9. LUTEIN [Concomitant]
     Active Substance: LUTEIN
  10. VITAMINS [Concomitant]
     Active Substance: VITAMINS
  11. BILBERRY [Concomitant]
     Active Substance: BILBERRY
  12. GARLIC [Concomitant]
  13. VITAMIN C [Concomitant]
     Active Substance: ASCORBIC ACID
  14. ZINC [Concomitant]
     Active Substance: ZINC
  15. COENZYME Q10 [Concomitant]
     Active Substance: DIETARY SUPPLEMENT\UBIDECARENONE

REACTIONS (3)
  - Peripheral swelling [None]
  - Muscle spasms [None]
  - Restless legs syndrome [None]

NARRATIVE: CASE EVENT DATE: 20210611
